FAERS Safety Report 9924331 (Version 3)
Quarter: 2014Q1

REPORT INFORMATION
  Report Type: Spontaneous
  Country: US (occurrence: US)
  Receive Date: 20140226
  Receipt Date: 20140327
  Transmission Date: 20141002
  Serious: Yes (Death)
  Sender: FDA-Public Use
  Company Number: US-JNJFOC-20140214496

PATIENT
  Sex: 0

DRUGS (1)
  1. BENADRYL UNSPECIFIED [Suspect]
     Indication: INTENTIONAL DRUG MISUSE
     Route: 065

REACTIONS (1)
  - Toxicity to various agents [Fatal]
